FAERS Safety Report 12273322 (Version 3)
Quarter: 2016Q2

REPORT INFORMATION
  Report Type: Spontaneous
  Country: CH (occurrence: CH)
  Receive Date: 20160415
  Receipt Date: 20160624
  Transmission Date: 20160815
  Serious: Yes (Life-Threatening, Hospitalization, Other)
  Sender: FDA-Public Use
  Company Number: PHHY2016CH000502

PATIENT
  Age: 60 Year
  Sex: Female

DRUGS (2)
  1. GILENYA [Suspect]
     Active Substance: FINGOLIMOD HYDROCHLORIDE
     Dosage: UNK
     Route: 065
     Dates: start: 20160617
  2. GILENYA [Suspect]
     Active Substance: FINGOLIMOD HYDROCHLORIDE
     Indication: MULTIPLE SCLEROSIS
     Dosage: 0.5 MG, QD
     Route: 048
     Dates: start: 20151013, end: 20151229

REACTIONS (9)
  - Progressive multifocal leukoencephalopathy [Recovered/Resolved]
  - Affect lability [Unknown]
  - JC virus test positive [Unknown]
  - Multiple sclerosis relapse [Unknown]
  - Cerebellar syndrome [Unknown]
  - Dysarthria [Unknown]
  - Lymphocyte count decreased [Unknown]
  - Immune reconstitution inflammatory syndrome [Recovered/Resolved with Sequelae]
  - Ataxia [Unknown]

NARRATIVE: CASE EVENT DATE: 20151224
